FAERS Safety Report 11759792 (Version 2)
Quarter: 2016Q1

REPORT INFORMATION
  Report Type: Spontaneous
  Country: US (occurrence: US)
  Receive Date: 20151120
  Receipt Date: 20160125
  Transmission Date: 20160525
  Serious: No
  Sender: FDA-Public Use
  Company Number: US-JNJFOC-20151105417

PATIENT
  Age: 61 Year
  Sex: Female
  Weight: 48.99 kg

DRUGS (2)
  1. WOMENS ROGAINE [Suspect]
     Active Substance: MINOXIDIL
     Route: 061
  2. WOMENS ROGAINE [Suspect]
     Active Substance: MINOXIDIL
     Indication: HAIR GROWTH ABNORMAL
     Dosage: 1/2 CAPFUL
     Route: 061
     Dates: start: 20150706

REACTIONS (4)
  - Incorrect dose administered [Recovered/Resolved]
  - Alopecia [Recovered/Resolved]
  - Drug administered at inappropriate site [Recovered/Resolved]
  - Drug effect incomplete [Recovered/Resolved]

NARRATIVE: CASE EVENT DATE: 20150706
